FAERS Safety Report 8234352-1 (Version None)
Quarter: 2012Q1

REPORT INFORMATION
  Report Type: 
  Country: None (occurrence: None)
  Receive Date: 20120326
  Receipt Date: 20120322
  Transmission Date: 20120608
  Serious: Yes (Death)
  Sender: FDA-Public Use
  Company Number: AU-B.I. PHARMACEUTICALS,INC./RIDGEFIELD-2011-AU-02539AU

PATIENT
  Sex: Male

DRUGS (11)
  1. COLOXYL AND SENNA [Concomitant]
  2. PRADAXA [Suspect]
     Indication: ATRIAL FIBRILLATION
     Dosage: 220 MG
     Dates: start: 20111028
  3. FOSAMAX [Concomitant]
     Dosage: 10 MG
  4. LIPITOR [Concomitant]
     Dosage: 40 MG
  5. PRILOSEC [Concomitant]
     Dosage: 20 MG
  6. CALCIUM CARBONATE [Concomitant]
     Dosage: 600 MG
  7. MOVIPREP [Concomitant]
  8. OSTELIN [Concomitant]
  9. DEXAMETHASONE [Concomitant]
     Dosage: 4 MG
  10. METOPROLOL TARTRATE [Concomitant]
     Dosage: 50 MG
  11. LASIX [Concomitant]
     Dosage: 40 MG

REACTIONS (2)
  - METASTASES TO CENTRAL NERVOUS SYSTEM [None]
  - LUNG NEOPLASM MALIGNANT [None]
